FAERS Safety Report 25628229 (Version 2)
Quarter: 2025Q3

REPORT INFORMATION
  Report Type: Spontaneous
  Country: RU (occurrence: RU)
  Receive Date: 20250731
  Receipt Date: 20250813
  Transmission Date: 20251021
  Serious: Yes (Other)
  Sender: BAYER HEALTHCARE PHARMACEUTICALS INC.
  Company Number: RU-BAYER-2025A100822

PATIENT
  Age: 40 Year
  Sex: Female
  Weight: 73 kg

DRUGS (1)
  1. MIRENA [Suspect]
     Active Substance: LEVONORGESTREL
     Dosage: 20?G/DAY
     Route: 015
     Dates: start: 20250505

REACTIONS (19)
  - Loss of consciousness [Recovered/Resolved]
  - Dizziness [Recovered/Resolved]
  - Nausea [Recovered/Resolved]
  - Vaginal discharge [Recovered/Resolved]
  - Generalised oedema [Not Recovered/Not Resolved]
  - Headache [Recovered/Resolved]
  - Panic attack [Not Recovered/Not Resolved]
  - Dyspnoea [Recovered/Resolved]
  - Muscle spasms [Recovered/Resolved]
  - Cold sweat [Recovered/Resolved]
  - Hypoaesthesia [Recovered/Resolved]
  - Breast swelling [Not Recovered/Not Resolved]
  - Breast pain [None]
  - Chest discomfort [Recovered/Resolved]
  - Chest pain [Recovered/Resolved]
  - Sensation of foreign body [Recovered/Resolved]
  - Anxiety [Recovered/Resolved]
  - Asthenia [Not Recovered/Not Resolved]
  - Arthralgia [Not Recovered/Not Resolved]

NARRATIVE: CASE EVENT DATE: 20250101
